FAERS Safety Report 21041642 (Version 6)
Quarter: 2022Q4

REPORT INFORMATION
  Report Type: Spontaneous
  Country: US (occurrence: US)
  Receive Date: 20220705
  Receipt Date: 20221013
  Transmission Date: 20230112
  Serious: Yes (Hospitalization)
  Sender: FDA-Public Use
  Company Number: US-GLENMARK PHARMACEUTICALS-2022GMK073207

PATIENT

DRUGS (8)
  1. OXCARBAZEPINE [Suspect]
     Active Substance: OXCARBAZEPINE
     Indication: Affective disorder
     Dosage: 3 DOSAGE FORM, QD (1 TABLET IN MORNING AND 2 TABLET AT NIGHT)
     Route: 048
  2. OXCARBAZEPINE [Suspect]
     Active Substance: OXCARBAZEPINE
     Dosage: 2 DOSAGE FORM, BID (2 TABLETS IN THE MORNING AND 2 TABLETS IN THE EVENING)
     Route: 048
     Dates: start: 202203
  3. OXCARBAZEPINE [Suspect]
     Active Substance: OXCARBAZEPINE
     Dosage: UNK
     Route: 048
     Dates: start: 202205
  4. OXCARBAZEPINE [Suspect]
     Active Substance: OXCARBAZEPINE
     Dosage: 900 MILLIGRAM, QD
     Route: 048
     Dates: start: 2022
  5. OXCARBAZEPINE [Suspect]
     Active Substance: OXCARBAZEPINE
     Dosage: 1200 MILLIGRAM, QD
     Route: 048
     Dates: start: 2022
  6. OXCARBAZEPINE [Suspect]
     Active Substance: OXCARBAZEPINE
     Indication: Affective disorder
     Dosage: 1200 MILLIGRAM, BID
     Route: 048
     Dates: start: 20220521, end: 20220530
  7. ABILIFY [Concomitant]
     Active Substance: ARIPIPRAZOLE
     Indication: Anxiety
     Dosage: 10 MILLIGRAM, QD
     Route: 065
  8. SERTRALINE [Concomitant]
     Active Substance: SERTRALINE HYDROCHLORIDE
     Indication: Anxiety
     Dosage: 25 MILLIGRAM, QD
     Route: 065

REACTIONS (24)
  - Head discomfort [Unknown]
  - Hyperhidrosis [Unknown]
  - Inappropriate affect [Unknown]
  - Dysstasia [Unknown]
  - Muscular weakness [Unknown]
  - Balance disorder [Unknown]
  - Dysarthria [Unknown]
  - Incoherent [Unknown]
  - Dizziness [Unknown]
  - Visual impairment [Unknown]
  - Emotional disorder [Unknown]
  - Panic disorder [Unknown]
  - Heart rate increased [Unknown]
  - Blood pressure increased [Unknown]
  - Fall [Unknown]
  - Gait disturbance [Unknown]
  - Stress [Unknown]
  - Product use in unapproved indication [Unknown]
  - Extra dose administered [Unknown]
  - Product appearance confusion [Unknown]
  - Anxiety [Unknown]
  - Blood sodium decreased [Unknown]
  - Gait inability [Unknown]
  - Product quality issue [Unknown]

NARRATIVE: CASE EVENT DATE: 20220101
